FAERS Safety Report 17458923 (Version 1)
Quarter: 2020Q1

REPORT INFORMATION
  Report Type: Spontaneous
  Country: US (occurrence: US)
  Receive Date: 20200212
  Receipt Date: 20200212
  Transmission Date: 20200409
  Serious: No
  Sender: FDA-Public Use
  Company Number: None

PATIENT
  Age: 64 Year
  Sex: Male
  Weight: 95.25 kg

DRUGS (6)
  1. VITAMIN D [Concomitant]
     Active Substance: VITAMIN D NOS
  2. GINSING [Concomitant]
  3. IODINE. [Concomitant]
     Active Substance: IODINE
  4. TYLENOL WITH CODEINE [Concomitant]
     Active Substance: ACETAMINOPHEN\CODEINE PHOSPHATE
  5. GABAPENTIN 300MG CAP ASC [Suspect]
     Active Substance: GABAPENTIN
     Indication: PANIC ATTACK
     Dosage: ?          QUANTITY:3 DF DOSAGE FORM;?
     Route: 048
     Dates: start: 20191102
  6. ZINC. [Concomitant]
     Active Substance: ZINC

REACTIONS (6)
  - Depression [None]
  - Restlessness [None]
  - Anxiety [None]
  - Insomnia [None]
  - Blood glucose increased [None]
  - Hot flush [None]

NARRATIVE: CASE EVENT DATE: 20191111
